FAERS Safety Report 25192421 (Version 2)
Quarter: 2025Q2

REPORT INFORMATION
  Report Type: Report from Study
  Country: US (occurrence: US)
  Receive Date: 20250414
  Receipt Date: 20250522
  Transmission Date: 20250717
  Serious: No
  Sender: TAKEDA
  Company Number: US-TAKEDA-US202030478

PATIENT
  Age: 80 Year
  Sex: Female
  Weight: 67.5 kg

DRUGS (37)
  1. ICATIBANT [Suspect]
     Active Substance: ICATIBANT ACETATE
     Indication: Immune system disorder
     Dosage: 30 MILLIGRAM, Q2WEEKS
     Dates: start: 20140708
  2. ICATIBANT [Suspect]
     Active Substance: ICATIBANT ACETATE
  3. KALBITOR [Suspect]
     Active Substance: ECALLANTIDE
     Indication: Immune system disorder
  4. KALBITOR [Suspect]
     Active Substance: ECALLANTIDE
  5. TAKHZYRO [Suspect]
     Active Substance: LANADELUMAB-FLYO
     Indication: Immune system disorder
     Dosage: 300 MILLIGRAM, Q2WEEKS
     Dates: start: 20190315
  6. THEOPHYLLINE [Concomitant]
     Active Substance: THEOPHYLLINE
  7. NEXIUM [Concomitant]
     Active Substance: ESOMEPRAZOLE MAGNESIUM
  8. PROZAC [Concomitant]
     Active Substance: FLUOXETINE HYDROCHLORIDE
  9. TRELEGY ELLIPTA [Concomitant]
     Active Substance: FLUTICASONE FUROATE\UMECLIDINIUM BROMIDE\VILANTEROL TRIFENATATE
  10. DANAZOL [Concomitant]
     Active Substance: DANAZOL
  11. SINGULAIR [Concomitant]
     Active Substance: MONTELUKAST SODIUM
  12. OMEPRAZOLE [Concomitant]
     Active Substance: OMEPRAZOLE
  13. HYDROCHLOROTHIAZIDE [Concomitant]
     Active Substance: HYDROCHLOROTHIAZIDE
  14. CRESTOR [Concomitant]
     Active Substance: ROSUVASTATIN CALCIUM
  15. LASIX [Concomitant]
     Active Substance: FUROSEMIDE
  16. DIPHENHYDRAMINE [Concomitant]
     Active Substance: DIPHENHYDRAMINE
  17. SODIUM CHLORIDE [Concomitant]
     Active Substance: SODIUM CHLORIDE
  18. EPINEPHRINE [Concomitant]
     Active Substance: EPINEPHRINE
  19. CLARITIN [Concomitant]
     Active Substance: LORATADINE
  20. FLUBLOK [Concomitant]
     Active Substance: INFLUENZA A VIRUS A/CALIFORNIA/7/2009 (H1N1) RECOMBINANT HEMAGGLUTININ ANTIGEN\INFLUENZA A VIRUS A/V
  21. SPIRIVA [Concomitant]
     Active Substance: TIOTROPIUM BROMIDE MONOHYDRATE
  22. CARBAMAZEPINE [Concomitant]
     Active Substance: CARBAMAZEPINE
  23. DIPHENHYDRAMINE HYDROCHLORIDE [Concomitant]
     Active Substance: DIPHENHYDRAMINE HYDROCHLORIDE
  24. BENADRYL [Concomitant]
     Active Substance: DIPHENHYDRAMINE HYDROCHLORIDE
  25. DICYCLOMINE HYDROCHLORIDE [Concomitant]
     Active Substance: DICYCLOMINE HYDROCHLORIDE
  26. ROFLUMILAST [Concomitant]
     Active Substance: ROFLUMILAST
  27. THEOPHYLLINE [Concomitant]
     Active Substance: THEOPHYLLINE
  28. ACETAMINOPHEN\HYDROCODONE [Concomitant]
     Active Substance: ACETAMINOPHEN\HYDROCODONE
  29. FLUOXETINE HYDROCHLORIDE [Concomitant]
     Active Substance: FLUOXETINE HYDROCHLORIDE
  30. DULERA [Concomitant]
     Active Substance: FORMOTEROL FUMARATE DIHYDRATE\MOMETASONE FUROATE
  31. BREO ELLIPTA [Concomitant]
     Active Substance: FLUTICASONE FUROATE\VILANTEROL TRIFENATATE
  32. ZOLPIDEM TARTRATE [Concomitant]
     Active Substance: ZOLPIDEM TARTRATE
  33. TYLENOL PM EXTRA STRENGTH [Concomitant]
     Active Substance: ACETAMINOPHEN\DIPHENHYDRAMINE HYDROCHLORIDE
  34. SIMETHICONE (DIMETHICONE) [Concomitant]
     Active Substance: DIMETHICONE
  35. VENTOLIN HFA [Concomitant]
     Active Substance: ALBUTEROL SULFATE
  36. SACCHAROMYCES CEREVISIAE [Concomitant]
     Active Substance: SACCHAROMYCES CEREVISIAE
  37. NAPROXEN [Concomitant]
     Active Substance: NAPROXEN

REACTIONS (16)
  - Neuralgia [Unknown]
  - Iron deficiency [Unknown]
  - Malaise [Unknown]
  - Productive cough [Unknown]
  - Ear discomfort [Unknown]
  - Oropharyngeal pain [Unknown]
  - Contusion [Unknown]
  - Infusion site pain [Unknown]
  - Pain in extremity [Unknown]
  - Insurance issue [Unknown]
  - Product use issue [Unknown]
  - Product dose omission issue [Unknown]
  - Exposure to household chemicals [Unknown]
  - Hereditary angioedema [Not Recovered/Not Resolved]
  - Dizziness [Unknown]
  - Nausea [Unknown]

NARRATIVE: CASE EVENT DATE: 20230729
